FAERS Safety Report 4640013-8 (Version None)
Quarter: 2005Q2

REPORT INFORMATION
  Report Type: 
  Country: None (occurrence: None)
  Receive Date: 20050415
  Receipt Date: 20050329
  Transmission Date: 20051028
  Serious: Yes (Hospitalization)
  Sender: FDA-Public Use
  Company Number: FR_050306128

PATIENT
  Age: 68 Year
  Sex: Female
  Weight: 56 kg

DRUGS (3)
  1. GEMZAR [Suspect]
     Indication: RENAL NEOPLASM
     Dosage: 1250 MG/M2/2 OTHER
     Route: 050
     Dates: start: 20040905, end: 20041227
  2. CISPLATIN [Concomitant]
  3. CARBOPLATIN [Concomitant]

REACTIONS (10)
  - CYANOSIS [None]
  - FLUSHING [None]
  - PAIN [None]
  - PAIN IN EXTREMITY [None]
  - PERIPHERAL COLDNESS [None]
  - PERIPHERAL ISCHAEMIA [None]
  - PETECHIAE [None]
  - PURPURA [None]
  - RENAL FAILURE [None]
  - WOUND [None]
